FAERS Safety Report 7863629-4 (Version None)
Quarter: 2011Q4

REPORT INFORMATION
  Report Type: 
  Country: None (occurrence: None)
  Receive Date: 20111027
  Receipt Date: 20101207
  Transmission Date: 20120403
  Serious: No
  Sender: FDA-Public Use
  Company Number: US-AMGEN-USASP2010002845

PATIENT
  Age: 64 Year
  Sex: Female

DRUGS (1)
  1. ENBREL [Suspect]
     Indication: RHEUMATOID ARTHRITIS
     Dates: start: 20100315

REACTIONS (6)
  - CORONARY ARTERY DISEASE [None]
  - MUSCULOSKELETAL PAIN [None]
  - BACK PAIN [None]
  - ROTATOR CUFF SYNDROME [None]
  - NECK PAIN [None]
  - STRESS [None]
